FAERS Safety Report 10975545 (Version 1)
Quarter: 2015Q2

REPORT INFORMATION
  Report Type: Spontaneous
  Country: US (occurrence: US)
  Receive Date: 20150401
  Receipt Date: 20150401
  Transmission Date: 20150821
  Serious: No
  Sender: FDA-Public Use
  Company Number: US-009507513-1503USA013228

PATIENT
  Sex: Male

DRUGS (1)
  1. AFRIN [Suspect]
     Active Substance: OXYMETAZOLINE
     Indication: PRODUCT USED FOR UNKNOWN INDICATION
     Dosage: UNK, UNKNOWN
     Route: 045

REACTIONS (6)
  - Incorrect drug administration duration [Unknown]
  - Drug administered at inappropriate site [Unknown]
  - Drug prescribing error [Unknown]
  - Erectile dysfunction [Unknown]
  - Overdose [Unknown]
  - Inappropriate schedule of drug administration [Unknown]
